FAERS Safety Report 22093692 (Version 2)
Quarter: 2024Q1

REPORT INFORMATION
  Report Type: Spontaneous
  Country: US (occurrence: US)
  Receive Date: 20230314
  Receipt Date: 20240221
  Transmission Date: 20240409
  Serious: No
  Sender: FDA-Public Use
  Company Number: US-PHARMING-PHAUS2023000172

PATIENT

DRUGS (2)
  1. RUCONEST [Suspect]
     Active Substance: CONESTAT ALFA
     Indication: Hereditary angioedema
     Dosage: 2100 IU, TWICE WEEKLY
     Route: 042
     Dates: start: 20210218
  2. RUCONEST [Suspect]
     Active Substance: CONESTAT ALFA
     Dosage: 2100 IU, TWICE WEEKLY
     Route: 042
     Dates: start: 202102

REACTIONS (3)
  - Weight fluctuation [Unknown]
  - Underdose [Unknown]
  - Intentional product use issue [Unknown]
